FAERS Safety Report 20819038 (Version 1)
Quarter: 2022Q2

REPORT INFORMATION
  Report Type: Other
  Country: US (occurrence: None)
  Receive Date: 20220512
  Receipt Date: 20220512
  Transmission Date: 20220721
  Serious: Yes (Other)
  Sender: FDA-Public Use
  Company Number: US-ROCHE-3093278

PATIENT
  Age: 74 Year
  Sex: Female

DRUGS (2)
  1. BEVACIZUMAB [Suspect]
     Active Substance: BEVACIZUMAB
     Indication: Ependymoma
     Dosage: 6 CYCLES
     Route: 065
  2. CARBOPLATIN [Concomitant]
     Active Substance: CARBOPLATIN
     Indication: Ependymoma
     Dosage: 6 CYCLES

REACTIONS (2)
  - Neoplasm progression [Unknown]
  - Drug ineffective [Unknown]
